FAERS Safety Report 5843581-3 (Version None)
Quarter: 2008Q3

REPORT INFORMATION
  Report Type: 
  Country: None (occurrence: None)
  Receive Date: 20080813
  Receipt Date: 20080505
  Transmission Date: 20090109
  Serious: No
  Sender: FDA-Public Use
  Company Number: A0727322A

PATIENT

DRUGS (1)
  1. COREG CR [Suspect]
     Indication: CARDIOMYOPATHY

REACTIONS (1)
  - EXERCISE TOLERANCE DECREASED [None]
